FAERS Safety Report 11268922 (Version 1)
Quarter: 2015Q3

REPORT INFORMATION
  Report Type: Spontaneous
  Country: JP (occurrence: JP)
  Receive Date: 20150714
  Receipt Date: 20150714
  Transmission Date: 20151125
  Serious: Yes (Other)
  Sender: FDA-Public Use
  Company Number: JP-BEH-2015052225

PATIENT
  Age: 73 Year
  Sex: Male

DRUGS (1)
  1. INTRAVENOUS IMMUNOGLOBULIN [Suspect]
     Active Substance: HUMAN IMMUNOGLOBULIN G
     Indication: ENCEPHALITIS BRAIN STEM

REACTIONS (4)
  - Depressed level of consciousness [Unknown]
  - Dyspnoea [Unknown]
  - Encephalitis brain stem [Unknown]
  - Stridor [Unknown]
